FAERS Safety Report 20108154 (Version 1)
Quarter: 2021Q4

REPORT INFORMATION
  Report Type: Spontaneous
  Country: US (occurrence: None)
  Receive Date: 20211123
  Receipt Date: 20211123
  Transmission Date: 20220303
  Serious: Yes (Hospitalization)
  Sender: FDA-Public Use
  Company Number: None

PATIENT
  Age: 52 Year
  Sex: Female

DRUGS (1)
  1. ENBREL [Suspect]
     Active Substance: ETANERCEPT
     Indication: Rheumatoid arthritis
     Dosage: OTHER FREQUENCY : EVERY WEEK;?
     Route: 058
     Dates: start: 20211021, end: 20211123

REACTIONS (4)
  - Peripheral swelling [None]
  - Soft tissue inflammation [None]
  - Injection site rash [None]
  - Hypersensitivity [None]

NARRATIVE: CASE EVENT DATE: 20211121
